FAERS Safety Report 24757527 (Version 1)
Quarter: 2024Q4

REPORT INFORMATION
  Report Type: Report from Study
  Country: DE (occurrence: DE)
  Receive Date: 20241220
  Receipt Date: 20241220
  Transmission Date: 20250114
  Serious: Yes (Death, Other)
  Sender: OCTAPHARMA
  Company Number: DE-OCTA-2024000203

PATIENT
  Age: 51 Year
  Sex: Female
  Weight: 112 kg

DRUGS (5)
  1. OCTAGAM IMMUNE GLOBULIN (HUMAN) [Suspect]
     Active Substance: HUMAN IMMUNOGLOBULIN G
     Indication: Immune thrombocytopenia
     Dosage: 30 G/ 40 G/ 40 G
     Route: 042
     Dates: start: 20221221, end: 20221223
  2. OCTAGAM IMMUNE GLOBULIN (HUMAN) [Suspect]
     Active Substance: HUMAN IMMUNOGLOBULIN G
     Dosage: 30 G/ 40 G/ 40 G
     Route: 042
     Dates: start: 20221221, end: 20221223
  3. OCTAGAM IMMUNE GLOBULIN (HUMAN) [Suspect]
     Active Substance: HUMAN IMMUNOGLOBULIN G
     Dosage: 30 G/ 40 G/ 40 G
     Route: 042
     Dates: start: 20221221, end: 20221223
  4. OCTAGAM IMMUNE GLOBULIN (HUMAN) [Suspect]
     Active Substance: HUMAN IMMUNOGLOBULIN G
     Dosage: 30 G/ 40 G/ 40 G
     Route: 042
     Dates: start: 20221221, end: 20221223
  5. OCTAGAM IMMUNE GLOBULIN (HUMAN) [Suspect]
     Active Substance: HUMAN IMMUNOGLOBULIN G
     Dosage: 30 G/ 40 G/ 40 G
     Route: 042
     Dates: start: 20221221, end: 20221223

REACTIONS (6)
  - Cerebral haemorrhage [Fatal]
  - Aspiration [Fatal]
  - Seizure [Fatal]
  - Cerebral mass effect [Unknown]
  - Brain herniation [Unknown]
  - Thrombocytopenia [Unknown]

NARRATIVE: CASE EVENT DATE: 20221224
